FAERS Safety Report 19300645 (Version 1)
Quarter: 2021Q2

REPORT INFORMATION
  Report Type: Spontaneous
  Country: CZ (occurrence: CZ)
  Receive Date: 20210525
  Receipt Date: 20210525
  Transmission Date: 20210717
  Serious: Yes (Other)
  Sender: FDA-Public Use
  Company Number: CZ-YILING-CZ-2021-YPL-00035

PATIENT

DRUGS (3)
  1. PIPERACILLINE / TAZOBACTAM [Suspect]
     Active Substance: PIPERACILLIN SODIUM\TAZOBACTAM SODIUM
     Indication: CORYNEBACTERIUM TEST POSITIVE
     Route: 042
  2. ACYCLOVIR. [Suspect]
     Active Substance: ACYCLOVIR
     Indication: HERPES SIMPLEX
  3. ACITRETIN. [Concomitant]
     Active Substance: ACITRETIN
     Indication: KERATOSIS FOLLICULAR
     Route: 048

REACTIONS (5)
  - Condition aggravated [Recovered/Resolved]
  - Sepsis [Recovered/Resolved]
  - Pneumonia [Recovered/Resolved]
  - Drug ineffective [Unknown]
  - Drug resistance [Unknown]
